FAERS Safety Report 10156441 (Version 2)
Quarter: 2014Q2

REPORT INFORMATION
  Report Type: Spontaneous
  Country: US (occurrence: None)
  Receive Date: 20140505
  Receipt Date: 20140513
  Transmission Date: 20141212
  Serious: Yes (Other)
  Sender: FDA-Public Use
  Company Number: 2014US002752

PATIENT
  Age: 59 Year
  Sex: Male

DRUGS (17)
  1. GLASSIA [Suspect]
     Indication: ALPHA-1 ANTI-TRYPSIN DEFICIENCY
     Route: 042
  2. ALPRAZOLAM (ALPRAZOLAM) [Concomitant]
  3. ALBUTEROL /00139501/ (SALBUTAMOL) [Concomitant]
  4. ALEDRONATE (ALENDRONATE SODIUM) [Concomitant]
  5. ASPIRIN (ACETYLICYLIC ACID) [Concomitant]
  6. AZITHROMYCIN (AZITHROMYCIN) [Concomitant]
  7. FENTANYL (FENTANYL) [Concomitant]
  8. HYDROCODONE (HYDROCODONE) [Concomitant]
  9. HYDROXYCHLOROQUINE (HYDROXYCHLOROQUINE) (HYDROCHLOROQUINE) [Concomitant]
  10. LISINOPRIL HYDROCHLORTHIAZID (HYDROCHLOROTHIAZIDE, LISINOPRIL) [Concomitant]
  11. MAGNESIUM (MAGNESIUM) [Concomitant]
  12. MULTIVITAMIN /00097801/ (ACORBIC ACID, CALCIUM PANTOTHENATE, ERGOCALCIFEROL, NICOTINAMIDE, PYRIDOXINE HYDROCHLORIDE, RETINOL, RIBOFLAVIN, THIAMINE HYDROHCHLORIDE) [Concomitant]
  13. POTASSIUM CHLORIDE (POTASSIUM CHLORIDE) [Concomitant]
  14. PROBIOTICS NOS (PROBIOTICS NOS) [Concomitant]
  15. SERTRALINE (SETRALINE) [Concomitant]
  16. SULFASALAZINE (SULFASALAZINE) [Concomitant]
  17. TIOTROPIUM (TIOTROPIUM) (TIOTROPIUM) [Concomitant]

REACTIONS (8)
  - Depression [None]
  - Vocal cord disorder [None]
  - Dyspnoea [None]
  - Dysphonia [None]
  - Body temperature increased [None]
  - Nasopharyngitis [None]
  - Dysphagia [None]
  - Vocal cord disorder [None]
